FAERS Safety Report 5397716-X (Version None)
Quarter: 2007Q3

REPORT INFORMATION
  Report Type: 
  Country: None (occurrence: None)
  Receive Date: 20070726
  Receipt Date: 20070720
  Transmission Date: 20080115
  Serious: Yes (Other)
  Sender: FDA-Public Use
  Company Number: BR-AVENTIS-200716741GDDC

PATIENT
  Age: 51 Year
  Sex: Male
  Weight: 76 kg

DRUGS (6)
  1. LANTUS [Suspect]
     Route: 058
     Dates: start: 20070701, end: 20070719
  2. LANTUS [Suspect]
     Route: 058
     Dates: start: 20070701
  3. RAMIPRIL [Concomitant]
     Dosage: DOSE QUANTITY: 2
     Dates: start: 20061001
  4. CEBRALAT [Concomitant]
     Dosage: DOSE QUANTITY: 2
     Dates: start: 20070601
  5. BENERVA [Concomitant]
     Dosage: DOSE QUANTITY: 1
     Dates: start: 19910101
  6. VIT B COMPLEX [Concomitant]
     Dosage: DOSE QUANTITY: 1
     Dates: start: 19910101

REACTIONS (1)
  - HYPOTENSION [None]
